FAERS Safety Report 16756399 (Version 1)
Quarter: 2019Q3

REPORT INFORMATION
  Report Type: Report from Study
  Country: US (occurrence: US)
  Receive Date: 20190829
  Receipt Date: 20190829
  Transmission Date: 20191005
  Serious: Yes (Hospitalization)
  Sender: FDA-Public Use
  Company Number: US-ACTELION-A-NJ2019-191822

PATIENT
  Sex: Male

DRUGS (6)
  1. CETIRIZINE [Concomitant]
     Active Substance: CETIRIZINE HYDROCHLORIDE
  2. SILDENAFIL. [Concomitant]
     Active Substance: SILDENAFIL
  3. TADALAFIL. [Concomitant]
     Active Substance: TADALAFIL
  4. EPANED [Concomitant]
     Active Substance: ENALAPRIL MALEATE
  5. DIGOXIN. [Concomitant]
     Active Substance: DIGOXIN
  6. TRACLEER [Suspect]
     Active Substance: BOSENTAN
     Indication: PULMONARY ARTERIAL HYPERTENSION
     Dosage: 16 MG, BID
     Route: 048
     Dates: start: 20190511

REACTIONS (2)
  - Adverse event [Unknown]
  - Catheterisation cardiac [Recovered/Resolved]
